FAERS Safety Report 16237861 (Version 1)
Quarter: 2019Q2

REPORT INFORMATION
  Report Type: Spontaneous
  Country: US (occurrence: US)
  Receive Date: 20190425
  Receipt Date: 20190425
  Transmission Date: 20190711
  Serious: No
  Sender: FDA-Public Use
  Company Number: US-ASTRAZENECA-2019SE50153

PATIENT

DRUGS (3)
  1. BREO ELLIPTA [Concomitant]
     Active Substance: FLUTICASONE FUROATE\VILANTEROL TRIFENATATE
  2. ADVAIR HFA [Concomitant]
     Active Substance: FLUTICASONE PROPIONATE\SALMETEROL XINAFOATE
  3. SYMBICORT [Suspect]
     Active Substance: BUDESONIDE\FORMOTEROL FUMARATE DIHYDRATE
     Indication: CHRONIC OBSTRUCTIVE PULMONARY DISEASE
     Dosage: UNKNOWN DOSE OF FREQUENCY UNKNOWN
     Route: 055

REACTIONS (15)
  - Stomatitis [Unknown]
  - Dysphagia [Unknown]
  - Swelling [Unknown]
  - Vomiting [Unknown]
  - Cough [Unknown]
  - Restless legs syndrome [Unknown]
  - Balance disorder [Unknown]
  - Migraine [Unknown]
  - Pain [Unknown]
  - Abdominal discomfort [Unknown]
  - Oropharyngeal pain [Unknown]
  - Abdominal pain upper [Unknown]
  - Rash [Unknown]
  - Pruritus [Unknown]
  - Dysphonia [Unknown]
